FAERS Safety Report 14687639 (Version 1)
Quarter: 2018Q1

REPORT INFORMATION
  Report Type: Spontaneous
  Country: FR (occurrence: FR)
  Receive Date: 20180328
  Receipt Date: 20180328
  Transmission Date: 20180509
  Serious: Yes (Other)
  Sender: FDA-Public Use
  Company Number: FR-AUROBINDO-AUR-APL-2018-016414

PATIENT
  Age: 70 Year
  Sex: Male

DRUGS (3)
  1. IMIPENEM+CILASTATIN [Suspect]
     Active Substance: CILASTATIN SODIUM\IMIPENEM
     Indication: SEPSIS
     Dosage: INJECTION
  2. LEVOFLOXACIN. [Suspect]
     Active Substance: LEVOFLOXACIN
     Indication: SEPSIS
     Dosage: UNK ()
  3. AMIKACIN [Suspect]
     Active Substance: AMIKACIN
     Indication: SEPSIS
     Dosage: UNK ()

REACTIONS (1)
  - Drug ineffective [Unknown]
